FAERS Safety Report 13094885 (Version 2)
Quarter: 2017Q1

REPORT INFORMATION
  Report Type: Spontaneous
  Country: PT (occurrence: PT)
  Receive Date: 20170106
  Receipt Date: 20170117
  Transmission Date: 20170428
  Serious: Yes (Life-Threatening, Hospitalization)
  Sender: FDA-Public Use
  Company Number: PT-BIOMARINAP-PT-2017-112352

PATIENT
  Age: 18 Year
  Sex: Female
  Weight: 31 kg

DRUGS (1)
  1. NAGLAZYME [Suspect]
     Active Substance: GALSULFASE
     Indication: MUCOPOLYSACCHARIDOSIS VI
     Dosage: UNK
     Route: 042
     Dates: start: 2006

REACTIONS (7)
  - Post procedural haemorrhage [Recovering/Resolving]
  - Dyspnoea [Recovering/Resolving]
  - Laryngeal cyst [Recovering/Resolving]
  - Cyanosis [Recovering/Resolving]
  - Obstructive airways disorder [Recovering/Resolving]
  - Increased viscosity of upper respiratory secretion [Recovering/Resolving]
  - Tracheomalacia [Recovering/Resolving]

NARRATIVE: CASE EVENT DATE: 20160908
